FAERS Safety Report 5722033-5 (Version None)
Quarter: 2008Q2

REPORT INFORMATION
  Report Type: 
  Country: None (occurrence: None)
  Receive Date: 20080429
  Receipt Date: 20080421
  Transmission Date: 20081010
  Serious: Yes (Hospitalization)
  Sender: FDA-Public Use
  Company Number: US-ELI_LILLY_AND_COMPANY-US200804005276

PATIENT
  Age: 69 Year
  Sex: Male

DRUGS (3)
  1. HUMALOG [Suspect]
  2. SEROQUEL [Concomitant]
     Indication: NERVOUSNESS
  3. TYLENOL W/ CODEINE NO. 4 [Concomitant]
     Indication: PAIN

REACTIONS (5)
  - ABNORMAL DREAMS [None]
  - BLOOD GLUCOSE INCREASED [None]
  - DIABETIC NEUROPATHY [None]
  - FEELING JITTERY [None]
  - NERVOUSNESS [None]
